FAERS Safety Report 5467971-6 (Version None)
Quarter: 2007Q3

REPORT INFORMATION
  Report Type: 
  Country: None (occurrence: None)
  Receive Date: 20070926
  Receipt Date: 20070918
  Transmission Date: 20080115
  Serious: Yes (Hospitalization, Other)
  Sender: FDA-Public Use
  Company Number: CA-JNJFOC-20061004076

PATIENT
  Sex: Female
  Weight: 58 kg

DRUGS (14)
  1. REMICADE [Suspect]
     Indication: RHEUMATOID ARTHRITIS
     Route: 042
  2. COUMADIN [Suspect]
     Indication: AORTIC VALVE REPLACEMENT
  3. LOVENOX [Concomitant]
  4. ATIVAN [Concomitant]
  5. PERINDOPRIL ERBUMINE [Concomitant]
  6. ASPIRIN [Concomitant]
  7. LASIX [Concomitant]
  8. PROPAFENONE HCL [Concomitant]
  9. CELEXA [Concomitant]
  10. DIGOXIN [Concomitant]
  11. ACTONEL [Concomitant]
  12. OSTOFORTE [Concomitant]
  13. NITROGLYCERIN [Concomitant]
  14. ARAVA [Concomitant]

REACTIONS (1)
  - HAEMORRHAGE [None]
